FAERS Safety Report 5162367-9 (Version None)
Quarter: 2006Q4

REPORT INFORMATION
  Report Type: 
  Country: None (occurrence: None)
  Receive Date: 20061128
  Receipt Date: 20061128
  Transmission Date: 20070319
  Serious: Yes (Hospitalization)
  Sender: FDA-Public Use
  Company Number: None

PATIENT
  Sex: Female
  Weight: 56 kg

DRUGS (2)
  1. CISPLATIN [Suspect]
     Dosage: 80 MG
  2. TAXOL [Suspect]
     Dosage: 215 MG

REACTIONS (3)
  - PHARYNGOLARYNGEAL PAIN [None]
  - PYREXIA [None]
  - SENSATION OF PRESSURE [None]
